FAERS Safety Report 8080812-6 (Version None)
Quarter: 2012Q1

REPORT INFORMATION
  Report Type: 
  Country: None (occurrence: None)
  Receive Date: 20120130
  Receipt Date: 20120119
  Transmission Date: 20120608
  Serious: Yes (Other)
  Sender: FDA-Public Use
  Company Number: ES-BRISTOL-MYERS SQUIBB COMPANY-16359267

PATIENT
  Age: 69 Year
  Sex: Female

DRUGS (1)
  1. IPILIMUMAB [Suspect]
     Indication: MALIGNANT MELANOMA
     Dosage: NO OF DOSE:3
     Dates: start: 20111115

REACTIONS (6)
  - ASTHENIA [None]
  - SOMNOLENCE [None]
  - NAUSEA [None]
  - DIZZINESS [None]
  - DECREASED APPETITE [None]
  - WEIGHT DECREASED [None]
